FAERS Safety Report 13413557 (Version 1)
Quarter: 2017Q2

REPORT INFORMATION
  Report Type: Spontaneous
  Country: US (occurrence: US)
  Receive Date: 20170407
  Receipt Date: 20170407
  Transmission Date: 20170830
  Serious: No
  Sender: FDA-Public Use
  Company Number: US-009507513-1703USA012985

PATIENT
  Age: 58 Year
  Sex: Female

DRUGS (4)
  1. AMLODIPINE BESYLATE. [Concomitant]
     Active Substance: AMLODIPINE BESYLATE
     Dosage: 10 MG, ONCE DAILY
  2. OMEPRAZOLE. [Concomitant]
     Active Substance: OMEPRAZOLE
     Dosage: 40 MG TABLET, AS NEEDED
     Route: 048
  3. DULERA [Suspect]
     Active Substance: FORMOTEROL FUMARATE DIHYDRATE\MOMETASONE FUROATE
     Indication: ASTHMA
     Dosage: 2 INHALATIONS IN AM/PM, BID
     Route: 055
  4. INDAPAMIDE. [Concomitant]
     Active Substance: INDAPAMIDE
     Dosage: 1.2 MG TABLET, ONCE DAILY
     Route: 048

REACTIONS (4)
  - Wheezing [Recovering/Resolving]
  - Drug dose omission [Unknown]
  - Product container issue [Unknown]
  - Dyspnoea [Recovering/Resolving]

NARRATIVE: CASE EVENT DATE: 20170325
